FAERS Safety Report 24345544 (Version 1)
Quarter: 2024Q3

REPORT INFORMATION
  Report Type: Spontaneous
  Country: US (occurrence: US)
  Receive Date: 20240920
  Receipt Date: 20240920
  Transmission Date: 20241016
  Serious: No
  Sender: PERRIGO
  Company Number: US-PERRIGO-24US007514

PATIENT

DRUGS (1)
  1. NASONEX [Suspect]
     Active Substance: MOMETASONE FUROATE
     Indication: Accidental exposure to product
     Dosage: UNKNOWN, SINGLE
     Route: 047
     Dates: start: 20240808, end: 20240808

REACTIONS (1)
  - Accidental exposure to product [Not Recovered/Not Resolved]

NARRATIVE: CASE EVENT DATE: 20240808
